FAERS Safety Report 14026413 (Version 1)
Quarter: 2017Q3

REPORT INFORMATION
  Report Type: Spontaneous
  Country: BG (occurrence: BG)
  Receive Date: 20170929
  Receipt Date: 20170929
  Transmission Date: 20171128
  Serious: Yes (Hospitalization)
  Sender: FDA-Public Use
  Company Number: BG-BRISTOL-MYERS SQUIBB COMPANY-BMS-2017-079232

PATIENT
  Age: 70 Year
  Sex: Female

DRUGS (5)
  1. ELIQUIS [Suspect]
     Active Substance: APIXABAN
     Indication: CEREBROVASCULAR ACCIDENT PROPHYLAXIS
     Dosage: 5 MG, BID
     Route: 048
     Dates: start: 201702
  2. MOXOGAMMA [Concomitant]
     Active Substance: MOXONIDINE
     Indication: HYPERTENSION
     Route: 065
  3. RENOVIA [Concomitant]
     Indication: HYPERTENSION
     Route: 065
  4. RITMONORM [Concomitant]
     Active Substance: PROPAFENONE HYDROCHLORIDE
     Indication: ARRHYTHMIA
     Dosage: UNK
     Route: 065
     Dates: start: 201707
  5. L-THYROXIN [Concomitant]
     Active Substance: LEVOTHYROXINE SODIUM
     Indication: AUTOIMMUNE THYROIDITIS
     Route: 065

REACTIONS (6)
  - Sensory disturbance [Recovered/Resolved]
  - Vertigo [Not Recovered/Not Resolved]
  - Hypertension [Recovered/Resolved]
  - Head discomfort [Recovered/Resolved]
  - Muscle rigidity [Recovered/Resolved]
  - Abdominal pain upper [Recovered/Resolved]

NARRATIVE: CASE EVENT DATE: 201707
